FAERS Safety Report 8554914-1 (Version None)
Quarter: 2012Q3

REPORT INFORMATION
  Report Type: 
  Country: None (occurrence: None)
  Receive Date: 20120725
  Receipt Date: 20120725
  Transmission Date: 20120928
  Serious: No
  Sender: FDA-Public Use
  Company Number: None

PATIENT
  Sex: Female
  Weight: 76.6579 kg

DRUGS (1)
  1. ALLI (ORLISTAT) [Suspect]
     Dosage: 2 TO 3 AFTER MEALS, 3/ PER DAY, PILL
     Dates: start: 20120625, end: 20120714

REACTIONS (5)
  - PRODUCT QUALITY ISSUE [None]
  - CONSTIPATION [None]
  - PRODUCT PACKAGING QUANTITY ISSUE [None]
  - ABDOMINAL DISTENSION [None]
  - DRUG INEFFECTIVE [None]
